FAERS Safety Report 8525181 (Version 3)
Quarter: 2013Q1

REPORT INFORMATION
  Report Type: Spontaneous
  Country: US (occurrence: US)
  Receive Date: 20120423
  Receipt Date: 20130208
  Transmission Date: 20140127
  Serious: Yes (Hospitalization)
  Sender: FDA-Public Use
  Company Number: PHEH2012US008102

PATIENT
  Age: 59 Year
  Sex: Female

DRUGS (3)
  1. MYFORTIC [Suspect]
     Dosage: 360 MG, UNK
  2. MYFORTIC [Suspect]
     Dosage: 360 MG, BID
     Dates: start: 20120220
  3. PREDNISONE [Suspect]

REACTIONS (4)
  - Hepatic failure [Unknown]
  - Dysphonia [Unknown]
  - General physical condition abnormal [Unknown]
  - Tremor [Unknown]
